FAERS Safety Report 18817354 (Version 2)
Quarter: 2021Q1

REPORT INFORMATION
  Report Type: Spontaneous
  Country: NL (occurrence: NL)
  Receive Date: 20210201
  Receipt Date: 20210305
  Transmission Date: 20210419
  Serious: Yes (Other)
  Sender: FDA-Public Use
  Company Number: NL-ACCORD-215952

PATIENT
  Sex: Female
  Weight: 120 kg

DRUGS (4)
  1. CLOMIPRAMINE [Suspect]
     Active Substance: CLOMIPRAMINE
     Indication: POST-TRAUMATIC STRESS DISORDER
     Dates: start: 2013
  2. TOPIRAMATE. [Suspect]
     Active Substance: TOPIRAMATE
     Indication: POST-TRAUMATIC STRESS DISORDER
     Dosage: STRENGTH?50MG, 1X PER DAY 1 TABLET
     Route: 048
     Dates: start: 2018
  3. CLOMIPRAMINE [Suspect]
     Active Substance: CLOMIPRAMINE
     Indication: DEPRESSION
     Dosage: STRENGTH?MGA 75MG, 1X DAILY 2 TABLETS
     Dates: start: 2013
  4. TOPIRAMATE. [Suspect]
     Active Substance: TOPIRAMATE
     Indication: DISSOCIATIVE DISORDER
     Dosage: STRENGTH?100 MG, 1X PER DAY 1 TABLET
     Route: 048
     Dates: start: 2018

REACTIONS (8)
  - Headache [Unknown]
  - Suicide attempt [Unknown]
  - Face oedema [Unknown]
  - Off label use [Unknown]
  - Weight increased [Unknown]
  - Liver function test increased [Unknown]
  - Acromegaly [Unknown]
  - Paraesthesia [Not Recovered/Not Resolved]

NARRATIVE: CASE EVENT DATE: 2018
